FAERS Safety Report 11833889 (Version 1)
Quarter: 2015Q4

REPORT INFORMATION
  Report Type: Spontaneous
  Country: US (occurrence: US)
  Receive Date: 20151214
  Receipt Date: 20151214
  Transmission Date: 20160305
  Serious: No
  Sender: FDA-Public Use
  Company Number: US-ALK ABELLO INC-1045469

PATIENT
  Age: 36 Year
  Sex: Female

DRUGS (11)
  1. MIXED RAGWEED [Suspect]
     Active Substance: AMBROSIA ARTEMISIIFOLIA POLLEN\AMBROSIA TRIFIDA POLLEN
     Route: 060
  2. AMERICAN ELM [Suspect]
     Active Substance: ULMUS AMERICANA POLLEN
     Route: 060
  3. NORTHERN RED OAK [Suspect]
     Active Substance: QUERCUS RUBRA POLLEN
     Route: 060
  4. DOG HAIR [Suspect]
     Active Substance: CANIS LUPUS FAMILIARIS HAIR
     Route: 060
  5. BOX ELDER [Suspect]
     Active Substance: ACER NEGUNDO POLLEN
     Route: 060
  6. COMMON SAGEBRUSH [Suspect]
     Active Substance: ARTEMISIA TRIDENTATA POLLEN
     Route: 060
  7. BERMUDA GRASS, STANDARDIZED [Suspect]
     Active Substance: CYNODON DACTYLON POLLEN
     Route: 060
  8. RED (RIVER) BIRCH [Suspect]
     Active Substance: BETULA NIGRA POLLEN
     Route: 060
  9. MIXTURE OF STANDARDIZED MITES [Suspect]
     Active Substance: DERMATOPHAGOIDES FARINAE\DERMATOPHAGOIDES PTERONYSSINUS
     Route: 060
  10. EASTERN COTTONWOOD [Suspect]
     Active Substance: POPULUS DELTOIDES POLLEN
     Route: 060
  11. CAT HAIR [Suspect]
     Active Substance: FELIS CATUS HAIR
     Route: 060

REACTIONS (3)
  - Pruritus [Unknown]
  - Rash [Unknown]
  - Off label use [Unknown]

NARRATIVE: CASE EVENT DATE: 20150323
